FAERS Safety Report 18162291 (Version 1)
Quarter: 2020Q3

REPORT INFORMATION
  Report Type: Spontaneous
  Country: US (occurrence: US)
  Receive Date: 20200818
  Receipt Date: 20200818
  Transmission Date: 20201103
  Serious: Yes (Other)
  Sender: FDA-Public Use
  Company Number: None

PATIENT
  Age: 43 Year
  Sex: Male
  Weight: 94.5 kg

DRUGS (4)
  1. TOPAMAX [Suspect]
     Active Substance: TOPIRAMATE
     Indication: BIPOLAR DISORDER
     Dates: start: 20200817, end: 20200817
  2. HALDOL [Concomitant]
     Active Substance: HALOPERIDOL
  3. LORAZEPAM. [Concomitant]
     Active Substance: LORAZEPAM
  4. RISPERDAL [Concomitant]
     Active Substance: RISPERIDONE
     Indication: BIPOLAR DISORDER

REACTIONS (8)
  - Dysphagia [None]
  - Micturition urgency [None]
  - Dyspnoea [None]
  - Tremor [None]
  - Hallucination [None]
  - Headache [None]
  - Depressed level of consciousness [None]
  - Dysuria [None]

NARRATIVE: CASE EVENT DATE: 20200817
